FAERS Safety Report 8506799-7 (Version None)
Quarter: 2012Q3

REPORT INFORMATION
  Report Type: 
  Country: None (occurrence: None)
  Receive Date: 20120712
  Receipt Date: 20120705
  Transmission Date: 20120928
  Serious: Yes (Other)
  Sender: FDA-Public Use
  Company Number: SE-BAYER-2012-065337

PATIENT
  Age: 45 Year
  Sex: Female

DRUGS (4)
  1. NERVOUS SYSTEM [Concomitant]
     Indication: BIPOLAR DISORDER
     Dosage: UNK
     Dates: start: 20111001
  2. MIRENA [Suspect]
     Dosage: 20 MCG/24HR, CONT
     Route: 015
     Dates: start: 20120705
  3. WARFARIN SODIUM [Concomitant]
     Indication: THROMBOSIS PROPHYLAXIS
     Dosage: UNK
  4. MIRENA [Suspect]
     Dosage: 20 MCG/24HR, CONT
     Route: 015
     Dates: start: 20080101, end: 20120705

REACTIONS (7)
  - ABDOMINAL DISTENSION [None]
  - BREAST TENDERNESS [None]
  - MENSTRUATION IRREGULAR [None]
  - PULMONARY EMBOLISM [None]
  - HEADACHE [None]
  - ABDOMINAL PAIN LOWER [None]
  - POST PROCEDURAL HAEMORRHAGE [None]
